FAERS Safety Report 6330064-X (Version None)
Quarter: 2009Q3

REPORT INFORMATION
  Report Type: 
  Country: None (occurrence: None)
  Receive Date: 20090826
  Receipt Date: 20090826
  Transmission Date: 20100115
  Serious: Yes (Death)
  Sender: FDA-Public Use
  Company Number: None

PATIENT
  Age: 75 Year
  Sex: Female
  Weight: 90.7194 kg

DRUGS (2)
  1. ZOFRAN [Suspect]
     Indication: NAUSEA
  2. BETAPACE [Suspect]
     Indication: ATRIAL FIBRILLATION

REACTIONS (1)
  - DEATH [None]
